FAERS Safety Report 16470329 (Version 1)
Quarter: 2019Q2

REPORT INFORMATION
  Report Type: Spontaneous
  Country: GB (occurrence: GB)
  Receive Date: 20190624
  Receipt Date: 20190624
  Transmission Date: 20190711
  Serious: Yes (Other)
  Sender: FDA-Public Use
  Company Number: GB-TEVA-2019-GB-1067020

PATIENT
  Age: 76 Year
  Sex: Female
  Weight: 48 kg

DRUGS (11)
  1. OMEPRAZOLE. [Concomitant]
     Active Substance: OMEPRAZOLE
     Indication: DYSPEPSIA
     Dates: start: 20190411, end: 20190509
  2. KENALOG [Concomitant]
     Active Substance: TRIAMCINOLONE ACETONIDE
     Dosage: USE AS DIRECTED
     Dates: start: 20190215, end: 20190216
  3. TRAMADOL. [Concomitant]
     Active Substance: TRAMADOL
     Dosage: TAKE 4 TIMES A DAY
     Dates: start: 20190212, end: 20190312
  4. APIXABAN [Concomitant]
     Active Substance: APIXABAN
     Dates: start: 20190425
  5. FUROSEMIDE. [Concomitant]
     Active Substance: FUROSEMIDE
     Dosage: MORNING
     Dates: start: 20190425
  6. RAMIPRIL. [Concomitant]
     Active Substance: RAMIPRIL
     Dates: start: 20190425
  7. LANSOPRAZOLE. [Concomitant]
     Active Substance: LANSOPRAZOLE
     Dosage: TO PROTECT THE STOMACH
     Dates: start: 20190425
  8. FEXOFENADINE [Concomitant]
     Active Substance: FEXOFENADINE\FEXOFENADINE HYDROCHLORIDE
     Dates: start: 20160712
  9. BISOPROLOL [Concomitant]
     Active Substance: BISOPROLOL
     Dates: start: 20190411
  10. ATORVASTATIN [Suspect]
     Active Substance: ATORVASTATIN
     Route: 065
     Dates: start: 20190425
  11. CALCIUM CARBONATE. [Concomitant]
     Active Substance: CALCIUM CARBONATE
     Dates: start: 20160712

REACTIONS (1)
  - Liver injury [Recovering/Resolving]

NARRATIVE: CASE EVENT DATE: 20190511
